FAERS Safety Report 25602111 (Version 1)
Quarter: 2025Q3

REPORT INFORMATION
  Report Type: Spontaneous
  Country: CN (occurrence: CN)
  Receive Date: 20250724
  Receipt Date: 20250724
  Transmission Date: 20251021
  Serious: Yes (Hospitalization, Other)
  Sender: Haleon PLC
  Company Number: CN-HALEON-2254056

PATIENT
  Age: 74 Year
  Sex: Female

DRUGS (1)
  1. DICLOFENAC SODIUM [Suspect]
     Active Substance: DICLOFENAC SODIUM
     Indication: Arthralgia
     Route: 048
     Dates: start: 20250501, end: 20250603

REACTIONS (7)
  - Toxic epidermal necrolysis [Recovering/Resolving]
  - Ulcerative keratitis [Recovering/Resolving]
  - Skin erosion [Recovering/Resolving]
  - Oral mucosa erosion [Recovering/Resolving]
  - Skin exfoliation [Recovering/Resolving]
  - Ulcer [Recovering/Resolving]
  - Dermatitis bullous [Recovering/Resolving]

NARRATIVE: CASE EVENT DATE: 20250529
